FAERS Safety Report 25982333 (Version 1)
Quarter: 2025Q4

REPORT INFORMATION
  Report Type: Report from Study
  Country: EU (occurrence: EU)
  Receive Date: 20251031
  Receipt Date: 20251031
  Transmission Date: 20260118
  Serious: Yes (Hospitalization)
  Sender: INSMED
  Company Number: EU-INSMED, INC.-2025-03291-FR

PATIENT
  Sex: Female
  Weight: 47 kg

DRUGS (2)
  1. ARIKAYCE [Suspect]
     Active Substance: AMIKACIN
     Indication: Atypical mycobacterial infection
     Dosage: 590 MILLIGRAM, QD
     Route: 055
     Dates: start: 20250811
  2. MELATONIN [Concomitant]
     Active Substance: MELATONIN
     Indication: Insomnia
     Dosage: IN THE EVENING
     Route: 065

REACTIONS (18)
  - Oxygen saturation decreased [Not Recovered/Not Resolved]
  - Fatigue [Not Recovered/Not Resolved]
  - General physical condition abnormal [Unknown]
  - Loss of personal independence in daily activities [Not Recovered/Not Resolved]
  - Eating disorder [Not Recovered/Not Resolved]
  - Respiratory disorder [Not Recovered/Not Resolved]
  - SARS-CoV-2 test positive [Unknown]
  - Fall [Unknown]
  - Tachypnoea [Unknown]
  - Selective eating disorder [Unknown]
  - Pain [Not Recovered/Not Resolved]
  - Dyspnoea exertional [Not Recovered/Not Resolved]
  - Dysphonia [Recovered/Resolved]
  - Productive cough [Recovering/Resolving]
  - Dyspnoea [Not Recovered/Not Resolved]
  - Weight decreased [Not Recovered/Not Resolved]
  - Nausea [Not Recovered/Not Resolved]
  - General physical health deterioration [Not Recovered/Not Resolved]

NARRATIVE: CASE EVENT DATE: 20250101
